FAERS Safety Report 7230482-1 (Version None)
Quarter: 2011Q1

REPORT INFORMATION
  Report Type: 
  Country: None (occurrence: None)
  Receive Date: 20110118
  Receipt Date: 20110113
  Transmission Date: 20110831
  Serious: Yes (Other)
  Sender: FDA-Public Use
  Company Number: US-JNJFOC-20110103832

PATIENT
  Age: 49 Year
  Sex: Male

DRUGS (1)
  1. LEVOFLOXACIN [Suspect]
     Indication: DIVERTICULITIS
     Route: 048

REACTIONS (2)
  - JOINT INJURY [None]
  - TENDONITIS [None]
